FAERS Safety Report 15253472 (Version 2)
Quarter: 2018Q3

REPORT INFORMATION
  Report Type: Report from Study
  Country: None (occurrence: RO)
  Receive Date: 20180808
  Receipt Date: 20180830
  Transmission Date: 20181010
  Serious: Yes (Hospitalization)
  Sender: FDA-Public Use
  Company Number: RO-ABBVIE-18S-135-2440381-00

PATIENT
  Age: 79 Year
  Sex: Male

DRUGS (2)
  1. DUODOPA [Suspect]
     Active Substance: CARBIDOPA\LEVODOPA
     Indication: PARKINSON^S DISEASE
     Dosage: MD=8.00, CD=3.50, ED=1.50 , NRED=0;
     Route: 050
     Dates: start: 20130405
  2. DUODOPA [Suspect]
     Active Substance: CARBIDOPA\LEVODOPA
     Dosage: MD=8.00, CD=3.20, ED=1.50 , NRED=0;
     Route: 050

REACTIONS (8)
  - Gait inability [Unknown]
  - Pneumonia [Recovered/Resolved]
  - Aphasia [Recovering/Resolving]
  - Dysphagia [Not Recovered/Not Resolved]
  - Dementia [Not Recovered/Not Resolved]
  - Lacunar infarction [Not Recovered/Not Resolved]
  - Ischaemic stroke [Recovering/Resolving]
  - Motor dysfunction [Not Recovered/Not Resolved]

NARRATIVE: CASE EVENT DATE: 20180730
